FAERS Safety Report 20611757 (Version 1)
Quarter: 2022Q1

REPORT INFORMATION
  Report Type: Report from Study
  Country: US (occurrence: US)
  Receive Date: 20220318
  Receipt Date: 20220318
  Transmission Date: 20220424
  Serious: Yes (Other)
  Sender: FDA-Public Use
  Company Number: US-BTGSP-US-BTGSP-22-0032

PATIENT
  Age: 5 Year
  Sex: Male

DRUGS (1)
  1. CROFAB [Suspect]
     Active Substance: CROTALIDAE POLYVALENT IMMUNE FAB (OVINE)
     Indication: Snake bite
     Dosage: 6 VIALS
     Route: 065

REACTIONS (4)
  - Mobility decreased [Unknown]
  - Pain [Unknown]
  - Underdose [Unknown]
  - Off label use [Unknown]
